FAERS Safety Report 5429491-4 (Version None)
Quarter: 2007Q3

REPORT INFORMATION
  Report Type: 
  Country: None (occurrence: None)
  Receive Date: 20070829
  Receipt Date: 20070822
  Transmission Date: 20080115
  Serious: Yes (Other)
  Sender: FDA-Public Use
  Company Number: B0484209A

PATIENT

DRUGS (1)
  1. SERETIDE [Suspect]
     Indication: DRUG USE FOR UNKNOWN INDICATION
     Route: 055
     Dates: start: 20060516

REACTIONS (3)
  - CONTUSION [None]
  - INCREASED TENDENCY TO BRUISE [None]
  - SKIN ATROPHY [None]
